FAERS Safety Report 7452235-1 (Version None)
Quarter: 2011Q2

REPORT INFORMATION
  Report Type: 
  Country: None (occurrence: None)
  Receive Date: 20110502
  Receipt Date: 20100824
  Transmission Date: 20111010
  Serious: No
  Sender: FDA-Public Use
  Company Number: US-ASTRAZENECA-2010SE39773

PATIENT
  Age: 88 Year
  Sex: Male
  Weight: 52.2 kg

DRUGS (5)
  1. VITAMINS [Concomitant]
  2. ADVAIR DISKUS 100/50 [Concomitant]
  3. SPIRIVA [Concomitant]
  4. THEOPHYLLINE [Concomitant]
  5. NEXIUM [Suspect]
     Indication: GASTROOESOPHAGEAL REFLUX DISEASE
     Route: 048
     Dates: start: 20100601

REACTIONS (1)
  - BREAST PAIN [None]
